FAERS Safety Report 5133694-6 (Version None)
Quarter: 2006Q4

REPORT INFORMATION
  Report Type: 
  Country: None (occurrence: None)
  Receive Date: 20061024
  Receipt Date: 20060629
  Transmission Date: 20070319
  Serious: No
  Sender: FDA-Public Use
  Company Number: US-AMGEN-KDL184703

PATIENT
  Sex: Male

DRUGS (3)
  1. SENSIPAR [Suspect]
     Indication: HYPERPARATHYROIDISM SECONDARY
     Dates: start: 20060613
  2. TOPROL-XL [Concomitant]
  3. FOSRENOL [Concomitant]

REACTIONS (2)
  - ABDOMINAL PAIN [None]
  - DIARRHOEA [None]
